FAERS Safety Report 11576243 (Version 1)
Quarter: 2015Q3

REPORT INFORMATION
  Report Type: Spontaneous
  Country: US (occurrence: US)
  Receive Date: 20150930
  Receipt Date: 20150930
  Transmission Date: 20151125
  Serious: Yes (Other)
  Sender: FDA-Public Use
  Company Number: US-JNJFOC-20150914306

PATIENT

DRUGS (2)
  1. PHENYLEPHRINE HYDROCHLORIDE. [Suspect]
     Active Substance: PHENYLEPHRINE HYDROCHLORIDE
     Indication: NASAL CONGESTION
     Route: 048
  2. PLACEBO [Suspect]
     Active Substance: UNSPECIFIED INGREDIENT
     Indication: NASAL CONGESTION
     Route: 065

REACTIONS (3)
  - Drug ineffective [Unknown]
  - Chest pain [Recovered/Resolved]
  - Pain in jaw [Recovered/Resolved]
